FAERS Safety Report 9050909 (Version 1)
Quarter: 2013Q1

REPORT INFORMATION
  Report Type: Spontaneous
  Country: DE (occurrence: DE)
  Receive Date: 20130205
  Receipt Date: 20130205
  Transmission Date: 20140127
  Serious: Yes (Hospitalization, Other)
  Sender: FDA-Public Use
  Company Number: DE-PFIZER INC-2013042284

PATIENT
  Age: 67 Year
  Sex: Female

DRUGS (1)
  1. INSPRA [Suspect]
     Dosage: 25 MG, 2X/DAY

REACTIONS (1)
  - Haematochezia [Unknown]
